FAERS Safety Report 5697527-1 (Version None)
Quarter: 2008Q2

REPORT INFORMATION
  Report Type: 
  Country: None (occurrence: None)
  Receive Date: 20080408
  Receipt Date: 20080327
  Transmission Date: 20081010
  Serious: Yes (Hospitalization)
  Sender: FDA-Public Use
  Company Number: NL-AMGEN-US272891

PATIENT
  Age: 42 Year
  Sex: Female

DRUGS (8)
  1. ENBREL [Suspect]
     Indication: RHEUMATOID ARTHRITIS
     Dates: start: 20071227, end: 20080101
  2. FERROGRAD [Concomitant]
     Dosage: 105 FE
  3. CALCICHEW-D3 [Concomitant]
     Dosage: 500 IU/400 IU 1 TIME PER DAY
  4. METHOTREXATE [Concomitant]
     Dosage: 2.5 MG
  5. FOLIC ACID [Concomitant]
  6. NAPROXEN [Concomitant]
     Dosage: 250 MG
  7. PANTOZOL [Concomitant]
  8. ACTONEL [Concomitant]

REACTIONS (7)
  - CHILLS [None]
  - ERYTHEMA [None]
  - OEDEMA PERIPHERAL [None]
  - PRURITUS [None]
  - PYREXIA [None]
  - RASH MACULAR [None]
  - SWELLING FACE [None]
